FAERS Safety Report 7512411-6 (Version None)
Quarter: 2011Q2

REPORT INFORMATION
  Report Type: 
  Country: None (occurrence: None)
  Receive Date: 20110520
  Receipt Date: 20110506
  Transmission Date: 20111010
  Serious: Yes (Hospitalization)
  Sender: FDA-Public Use
  Company Number: 2011001846

PATIENT
  Age: 80 Year
  Sex: Male

DRUGS (12)
  1. LASIX [Concomitant]
  2. PLETAL [Concomitant]
  3. ADOAIR [Concomitant]
  4. UNIPHYL (THEOPHYLLLINE) [Concomitant]
  5. CONIEL (BENIDI PINE HYDROCHLORIDE) [Concomitant]
  6. WARFARIN SODIUM [Concomitant]
  7. ERLOTINIB HYDROCHLORIDE [Suspect]
     Indication: NON-SMALL CELL LUNG CANCER
     Dosage: (150 MG,QD),ORAL
     Route: 048
     Dates: start: 20100616, end: 20110417
  8. MUCOSOLVAN L(AMBROXOL) [Concomitant]
  9. LAC-B (LACTOBACILLUS BIFIDUS, LYOPHILIZED) [Concomitant]
  10. DIOVAN [Concomitant]
  11. MUCOSTA (REBAMIPIDE) [Concomitant]
  12. RESTAMIN (DIPHENHYDRAMINE) [Concomitant]

REACTIONS (10)
  - WHEEZING [None]
  - MALAISE [None]
  - NEUTROPENIA [None]
  - LYMPHANGIOSIS CARCINOMATOSA [None]
  - HYPOXIA [None]
  - PYREXIA [None]
  - RESPIRATORY TRACT INFECTION [None]
  - BRONCHIAL WALL THICKENING [None]
  - STOMATITIS [None]
  - ASTHMA [None]
